FAERS Safety Report 9769173 (Version 1)
Quarter: 2013Q4

REPORT INFORMATION
  Report Type: Report from Study
  Country: US (occurrence: US)
  Receive Date: 20131218
  Receipt Date: 20131218
  Transmission Date: 20140711
  Serious: Yes (Hospitalization)
  Sender: FDA-Public Use
  Company Number: US-JNJFOC-20131206377

PATIENT
  Age: 62 Year
  Sex: Female
  Weight: 73.03 kg

DRUGS (2)
  1. REMICADE [Suspect]
     Indication: RHEUMATOID ARTHRITIS
     Route: 042
     Dates: start: 2012
  2. METHOTREXATE [Suspect]
     Indication: RHEUMATOID ARTHRITIS
     Dosage: START DATE ALSO REPORTED AS UNSPECIFIED DATE IN 2013
     Route: 048
     Dates: start: 201309, end: 201309

REACTIONS (5)
  - Abdominal pain upper [Unknown]
  - Polyp [Unknown]
  - Pain [Unknown]
  - Joint swelling [Unknown]
  - Rash [Unknown]
